FAERS Safety Report 8138973-6 (Version None)
Quarter: 2012Q1

REPORT INFORMATION
  Report Type: 
  Country: None (occurrence: None)
  Receive Date: 20120215
  Receipt Date: 20120209
  Transmission Date: 20120608
  Serious: No
  Sender: FDA-Public Use
  Company Number: US-PFIZER INC-2012036357

PATIENT
  Sex: Female
  Weight: 73 kg

DRUGS (5)
  1. GEODON [Suspect]
     Dosage: 40 MG, 1X/DAY
     Route: 048
  2. GEODON [Suspect]
     Dosage: STARTED TAKING ZIPRASIDONE 40MG ONCE A DAY AND 80MG ONCE A DAY EVERY ALTERNATE DAYS  UNK
     Dates: start: 20120101
  3. AMBIEN [Concomitant]
     Dosage: UNK
  4. GEODON [Suspect]
     Indication: DEPRESSION
     Dosage: 120 MG, 1X/DAY
     Route: 048
     Dates: start: 20110801, end: 20111125
  5. EFFEXOR [Concomitant]
     Dosage: UNK

REACTIONS (3)
  - LIMB DISCOMFORT [None]
  - DRUG INEFFECTIVE [None]
  - DEPRESSION [None]
